FAERS Safety Report 20879624 (Version 2)
Quarter: 2022Q2

REPORT INFORMATION
  Report Type: Spontaneous
  Country: HU (occurrence: HU)
  Receive Date: 20220526
  Receipt Date: 20220611
  Transmission Date: 20220721
  Serious: Yes (Other)
  Sender: FDA-Public Use
  Company Number: HU-TEVA-2022-HU-2039290

PATIENT
  Age: 70 Year
  Sex: Male

DRUGS (5)
  1. METFORMIN [Suspect]
     Active Substance: METFORMIN HYDROCHLORIDE
     Indication: Squamous cell carcinoma of skin
     Dosage: DOSAGE: (3 X500MG DAILY)
     Route: 065
     Dates: start: 201705, end: 201906
  2. AZATHIOPRINE [Suspect]
     Active Substance: AZATHIOPRINE
     Indication: Myasthenia gravis
     Dosage: 150 MILLIGRAM DAILY;
     Route: 065
     Dates: start: 2011
  3. TRAMETINIB [Suspect]
     Active Substance: TRAMETINIB
     Indication: Squamous cell carcinoma of skin
     Route: 065
     Dates: start: 201810, end: 201906
  4. CISPLATIN [Concomitant]
     Active Substance: CISPLATIN
     Indication: Squamous cell carcinoma of skin
     Dosage: ON DAY 1 OF THE CYCLE; RECEIVED SIX CYCLES, 100 MG/M2 ONCE IN 3 WEEKS
     Route: 065
     Dates: start: 201609, end: 201701
  5. FLUOROURACIL [Concomitant]
     Active Substance: FLUOROURACIL
     Indication: Squamous cell carcinoma of skin
     Dosage: ON DAY 1-5 OF THE CYCLE; RECEIVED SIX CYCLES, 1000 MG/M2 ONCE IN 3 WEEKS
     Route: 065
     Dates: start: 201609, end: 201701

REACTIONS (4)
  - Acquired gene mutation [Unknown]
  - Rash [Recovered/Resolved]
  - Dermatitis [Recovered/Resolved]
  - Off label use [Unknown]
